FAERS Safety Report 6129086-3 (Version None)
Quarter: 2009Q1

REPORT INFORMATION
  Report Type: 
  Country: None (occurrence: None)
  Receive Date: 20090320
  Receipt Date: 20090320
  Transmission Date: 20090719
  Serious: No
  Sender: FDA-Public Use
  Company Number: None

PATIENT
  Sex: Female
  Weight: 132.4503 kg

DRUGS (2)
  1. DOXAZOSIN MESYLATE [Suspect]
     Indication: BENIGN PROSTATIC HYPERPLASIA
     Dosage: 90 ONCE DAY PO
     Route: 048
     Dates: start: 20081010, end: 20081130
  2. DOXAZOSIN MESYLATE [Suspect]
     Indication: HYPERTENSION
     Dosage: 90 ONCE DAY PO
     Route: 048
     Dates: start: 20081010, end: 20081130

REACTIONS (6)
  - ALOPECIA [None]
  - DIZZINESS [None]
  - DRUG INEFFECTIVE [None]
  - LETHARGY [None]
  - NAUSEA [None]
  - VISION BLURRED [None]
